FAERS Safety Report 21466434 (Version 1)
Quarter: 2022Q4

REPORT INFORMATION
  Report Type: Spontaneous
  Country: US (occurrence: None)
  Receive Date: 20221015
  Receipt Date: 20221015
  Transmission Date: 20230113
  Serious: No
  Sender: FDA-Public Use
  Company Number: None

PATIENT
  Age: 70 Year
  Sex: Female
  Weight: 56.25 kg

DRUGS (6)
  1. RECLAST [Suspect]
     Active Substance: ZOLEDRONIC ACID
     Indication: Osteoporosis
  2. HYDROCHLOROTHIAZIDE [Concomitant]
     Active Substance: HYDROCHLOROTHIAZIDE
  3. LISINOPRIL [Concomitant]
     Active Substance: LISINOPRIL
  4. CALCIUM [Concomitant]
     Active Substance: CALCIUM
  5. VITAMIN D NOS [Concomitant]
     Active Substance: VITAMIN D NOS
  6. NAPROSYN [Concomitant]
     Active Substance: NAPROXEN

REACTIONS (8)
  - Pyrexia [None]
  - Muscular weakness [None]
  - Headache [None]
  - Dizziness [None]
  - Nausea [None]
  - Parosmia [None]
  - Taste disorder [None]
  - Gastrointestinal pain [None]

NARRATIVE: CASE EVENT DATE: 20221012
